FAERS Safety Report 10308060 (Version 3)
Quarter: 2014Q4

REPORT INFORMATION
  Report Type: Spontaneous
  Country: CA (occurrence: None)
  Receive Date: 20140711
  Receipt Date: 20141112
  Transmission Date: 20150528
  Serious: Yes (Other)
  Sender: FDA-Public Use
  Company Number: 2014CA005716

PATIENT
  Age: 90 Year
  Sex: Male

DRUGS (1)
  1. ELIGARD [Suspect]
     Active Substance: LEUPROLIDE ACETATE
     Indication: PRODUCT USED FOR UNKNOWN INDICATION
     Dosage: Q3MONTHS
     Dates: start: 20140410

REACTIONS (3)
  - Fall [None]
  - Myocardial infarction [None]
  - Lower limb fracture [None]

NARRATIVE: CASE EVENT DATE: 20140418
